FAERS Safety Report 10959974 (Version 3)
Quarter: 2015Q2

REPORT INFORMATION
  Report Type: Report from Study
  Country: US (occurrence: US)
  Receive Date: 20150327
  Receipt Date: 20150423
  Transmission Date: 20150821
  Serious: Yes (Hospitalization)
  Sender: FDA-Public Use
  Company Number: US-BIOGENIDEC-2015BI038233

PATIENT
  Age: 71 Year
  Sex: Female

DRUGS (1)
  1. PLEGRIDY [Suspect]
     Active Substance: PEGINTERFERON BETA-1A
     Indication: MULTIPLE SCLEROSIS
     Dates: start: 20150130, end: 20150213

REACTIONS (5)
  - Back pain [Recovered/Resolved]
  - Herpes zoster [Recovered/Resolved]
  - Musculoskeletal pain [Recovered/Resolved]
  - Disorientation [Not Recovered/Not Resolved]
  - Respiratory tract infection bacterial [Recovered/Resolved with Sequelae]

NARRATIVE: CASE EVENT DATE: 201502
